FAERS Safety Report 6111184-1 (Version None)
Quarter: 2009Q1

REPORT INFORMATION
  Report Type: 
  Country: None (occurrence: None)
  Receive Date: 20090309
  Receipt Date: 20090309
  Transmission Date: 20090719
  Serious: Yes (Life-Threatening)
  Sender: FDA-Public Use
  Company Number: None

PATIENT
  Sex: Male
  Weight: 56.5 kg

DRUGS (17)
  1. SIROLIMUS [Suspect]
     Indication: IMMUNOSUPPRESSION
     Dosage: 3MG QD PO
     Route: 048
     Dates: start: 20050526, end: 20070320
  2. SIROLIMUS [Suspect]
     Indication: LUNG TRANSPLANT
     Dosage: 3MG QD PO
     Route: 048
     Dates: start: 20050526, end: 20070320
  3. PROGRAF [Concomitant]
  4. PREDNISONE TAB [Concomitant]
  5. TRIMETHOPRIM-SULFAMETROXAZOLE [Concomitant]
  6. ACETYLCYSTEINE [Concomitant]
  7. ALBUTEROL [Concomitant]
  8. ALENDRONATE SODIUM [Concomitant]
  9. AMYLASE-LIPASE-PROTEASE [Concomitant]
  10. CALCITRIOL [Concomitant]
  11. CALCIUM [Concomitant]
  12. DOCUSATE SODIUM [Concomitant]
  13. FLUTICASONEM INSULIN [Concomitant]
  14. HYDROCODONE BITARTRATE [Concomitant]
  15. ESOPEPRAZOLE [Concomitant]
  16. DOMPERIDONE [Concomitant]
  17. IMEPENEM-CILASTATIN [Concomitant]

REACTIONS (1)
  - DEEP VEIN THROMBOSIS [None]
